FAERS Safety Report 4378484-7 (Version None)
Quarter: 2004Q2

REPORT INFORMATION
  Report Type: 
  Country: None (occurrence: None)
  Receive Date: 20040609
  Receipt Date: 20040524
  Transmission Date: 20050107
  Serious: Yes (Hospitalization, Other)
  Sender: FDA-Public Use
  Company Number: US_990826843

PATIENT
  Age: 78 Year
  Sex: Female
  Weight: 83 kg

DRUGS (6)
  1. HUMULIN 70/30 [Suspect]
     Indication: DIABETES MELLITUS
     Dosage: 24 U/2 DAY
     Dates: start: 19981101
  2. HUMULIN N [Suspect]
     Indication: DIABETES MELLITUS
     Dates: start: 20000601
  3. PLAVIX [Concomitant]
  4. ASPIRIN [Concomitant]
  5. THYROID TAB [Concomitant]
  6. BLOOD PRESSURE MEDICATIONS [Concomitant]

REACTIONS (14)
  - BLINDNESS [None]
  - BLOOD GLUCOSE FLUCTUATION [None]
  - DIARRHOEA [None]
  - EYE DISORDER [None]
  - HYPERGLYCAEMIA [None]
  - INJECTION SITE HAEMORRHAGE [None]
  - INJECTION SITE PAIN [None]
  - INJECTION SITE REACTION [None]
  - LUNG NEOPLASM MALIGNANT [None]
  - NAUSEA [None]
  - PHARMACEUTICAL PRODUCT COMPLAINT [None]
  - VISUAL ACUITY REDUCED [None]
  - VOCAL CORD PARALYSIS [None]
  - WEIGHT INCREASED [None]
